FAERS Safety Report 9112383 (Version 1)
Quarter: 2013Q1

REPORT INFORMATION
  Report Type: Spontaneous
  Country: US (occurrence: US)
  Receive Date: 20130219
  Receipt Date: 20130219
  Transmission Date: 20140127
  Serious: No
  Sender: FDA-Public Use
  Company Number: US-BRISTOL-MYERS SQUIBB COMPANY-16709750

PATIENT
  Age: 70 Year
  Sex: Female
  Weight: 70.29 kg

DRUGS (2)
  1. ORENCIA [Suspect]
     Indication: RHEUMATOID ARTHRITIS
     Dosage: LAST INFUSION 1JUN2012
     Route: 042
  2. MULTIVITAMIN [Concomitant]

REACTIONS (4)
  - Tooth disorder [Unknown]
  - Nail disorder [Unknown]
  - Haemorrhoidal haemorrhage [Unknown]
  - Epistaxis [Unknown]
